FAERS Safety Report 21258741 (Version 2)
Quarter: 2022Q3

REPORT INFORMATION
  Report Type: Spontaneous
  Country: CN (occurrence: CN)
  Receive Date: 20220826
  Receipt Date: 20220830
  Transmission Date: 20221027
  Serious: Yes (Other)
  Sender: FDA-Public Use
  Company Number: CN-PFIZER INC-PV202200049120

PATIENT
  Age: 46 Year
  Sex: Female
  Weight: 39 kg

DRUGS (4)
  1. CISPLATIN [Suspect]
     Active Substance: CISPLATIN
     Indication: Neoplasm
     Dosage: 60 MG, 1X/DAY
     Route: 033
     Dates: start: 20220723, end: 20220725
  2. DOCETAXEL [Suspect]
     Active Substance: DOCETAXEL
     Indication: Neoplasm
     Dosage: 100 MG, ONCE EVERY 3 DAYS
     Route: 041
     Dates: start: 20220718, end: 20220718
  3. CYCLOPHOSPHAMIDE [Suspect]
     Active Substance: CYCLOPHOSPHAMIDE
     Indication: Neoplasm
     Dosage: 0.6 MG, ONCE EVERY 3 DAYS
     Route: 041
     Dates: start: 20220718, end: 20220718
  4. DOXORUBICIN HYDROCHLORIDE [Suspect]
     Active Substance: DOXORUBICIN HYDROCHLORIDE
     Indication: Neoplasm
     Dosage: 60 MG, ONCE EVERY 3 DAYS
     Route: 041
     Dates: start: 20220718, end: 20220718

REACTIONS (6)
  - Agranulocytosis [Recovering/Resolving]
  - Abdominal distension [Recovering/Resolving]
  - Vomiting [Recovering/Resolving]
  - Haemoglobin decreased [Recovering/Resolving]
  - Fatigue [Recovering/Resolving]
  - Nausea [Recovering/Resolving]

NARRATIVE: CASE EVENT DATE: 20220725
